FAERS Safety Report 8346559-3 (Version None)
Quarter: 2012Q2

REPORT INFORMATION
  Report Type: 
  Country: None (occurrence: None)
  Receive Date: 20120509
  Receipt Date: 20120427
  Transmission Date: 20120825
  Serious: Yes (Hospitalization)
  Sender: FDA-Public Use
  Company Number: PHHY2012JP023501

PATIENT
  Age: 76 Year
  Sex: Female

DRUGS (11)
  1. SINGULAIR [Concomitant]
     Indication: ASTHMA
     Dosage: 10 MG, UNK
     Route: 048
  2. MUCOSOLVAN [Concomitant]
     Indication: ASTHMA
     Dosage: 45 MG, UNK
     Route: 048
  3. ALVESCO [Concomitant]
     Indication: ASTHMA
     Dosage: 400 UG, UNK
  4. AMLODIPINE [Concomitant]
     Indication: HYPERTENSION
     Dosage: 2.5 MG, UNK
     Route: 048
  5. EXELON [Suspect]
     Dosage: 9 MG, DAILY
     Route: 062
     Dates: start: 20120221, end: 20120222
  6. SPIROPENT [Concomitant]
     Indication: ASTHMA
     Dosage: 40 MG, UNK
     Route: 048
  7. MICARDIS [Concomitant]
     Indication: HYPERTENSION
     Dosage: 40 MG, UNK
     Route: 048
  8. VESICARE [Concomitant]
     Indication: POLLAKIURIA
     Dosage: 10 MG, UNK
     Route: 048
  9. HOKUNALIN [Concomitant]
     Indication: ASTHMA
     Dosage: 2 MG, UNK
  10. EXELON [Suspect]
     Indication: DEMENTIA ALZHEIMER'S TYPE
     Dosage: 4.5 MG, DAILY
     Route: 062
     Dates: start: 20120124
  11. THEO-DUR [Concomitant]
     Indication: ASTHMA
     Dosage: 200 MG, UNK
     Route: 048

REACTIONS (6)
  - VOMITING [None]
  - ASTHMA [None]
  - NAUSEA [None]
  - DYSPNOEA [None]
  - WHEEZING [None]
  - COUGH [None]
